FAERS Safety Report 19641853 (Version 5)
Quarter: 2022Q3

REPORT INFORMATION
  Report Type: Report from Study
  Country: US (occurrence: US)
  Receive Date: 20210731
  Receipt Date: 20220827
  Transmission Date: 20221027
  Serious: Yes (Other)
  Sender: FDA-Public Use
  Company Number: NVSC2021US170686

PATIENT
  Age: 39 Year
  Sex: Female

DRUGS (2)
  1. GILENYA [Suspect]
     Active Substance: FINGOLIMOD HYDROCHLORIDE
     Indication: Multiple sclerosis
     Dosage: 0.5 MG, QD
     Route: 048
     Dates: start: 20210723
  2. GILENYA [Suspect]
     Active Substance: FINGOLIMOD HYDROCHLORIDE
     Dosage: 0.5 MG, QD
     Route: 048

REACTIONS (19)
  - Multiple sclerosis relapse [Unknown]
  - Paraesthesia [Unknown]
  - Limb discomfort [Unknown]
  - Flank pain [Unknown]
  - Asthenia [Unknown]
  - Peroneal nerve palsy [Unknown]
  - Thinking abnormal [Unknown]
  - Speech disorder [Unknown]
  - Heart rate increased [Unknown]
  - Fatigue [Unknown]
  - Sinusitis [Unknown]
  - Dizziness [Unknown]
  - Headache [Unknown]
  - Sedation [Recovered/Resolved]
  - Somnolence [Recovered/Resolved]
  - Blepharospasm [Unknown]
  - Dizziness [Recovered/Resolved]
  - Heart rate decreased [Recovered/Resolved]
  - Product dose omission issue [Unknown]

NARRATIVE: CASE EVENT DATE: 20210723
